FAERS Safety Report 13578213 (Version 1)
Quarter: 2017Q2

REPORT INFORMATION
  Report Type: Spontaneous
  Country: MX (occurrence: MX)
  Receive Date: 20170524
  Receipt Date: 20170524
  Transmission Date: 20170830
  Serious: Yes (Hospitalization)
  Sender: FDA-Public Use
  Company Number: MX-BAYER-2017-096008

PATIENT
  Age: 22 Year
  Sex: Female
  Weight: 69.98 kg

DRUGS (1)
  1. ASPIRINA 500 MG [Suspect]
     Active Substance: ASPIRIN
     Indication: HEADACHE
     Dosage: 2 DF, ONCE
     Route: 048
     Dates: start: 20170328, end: 20170328

REACTIONS (3)
  - Expired product administered [None]
  - Headache [Recovered/Resolved]
  - Rash [Not Recovered/Not Resolved]

NARRATIVE: CASE EVENT DATE: 20170328
